FAERS Safety Report 5483895-2 (Version None)
Quarter: 2007Q4

REPORT INFORMATION
  Report Type: 
  Country: None (occurrence: None)
  Receive Date: 20071012
  Receipt Date: 20070928
  Transmission Date: 20080405
  Serious: Yes (Other)
  Sender: FDA-Public Use
  Company Number: FI-GENENTECH-247371

PATIENT
  Age: 36 Year
  Sex: Female

DRUGS (5)
  1. HERCEPTIN [Suspect]
     Indication: BREAST CANCER
     Dosage: UNK, 1/WEEK
     Route: 042
     Dates: start: 20060309
  2. TAXOTERE [Concomitant]
     Indication: BREAST CANCER
  3. CYCLOPHOSPHAMIDE [Concomitant]
     Indication: BREAST CANCER
  4. EPIRUBICIN [Concomitant]
     Indication: BREAST CANCER
  5. FLUOROURACIL [Concomitant]
     Indication: BREAST CANCER

REACTIONS (4)
  - ANGINA PECTORIS [None]
  - EXERCISE TOLERANCE DECREASED [None]
  - MYALGIA [None]
  - TACHYCARDIA [None]
